FAERS Safety Report 7585476-3 (Version None)
Quarter: 2011Q3

REPORT INFORMATION
  Report Type: 
  Country: None (occurrence: None)
  Receive Date: 20110701
  Receipt Date: 20110623
  Transmission Date: 20111222
  Serious: Yes (Hospitalization, Other)
  Sender: FDA-Public Use
  Company Number: US-BAYER-201037161NA

PATIENT
  Age: 28 Year
  Sex: Female
  Weight: 99 kg

DRUGS (3)
  1. NAPROXEN (ALEVE) [Concomitant]
  2. YASMIN [Suspect]
     Indication: CONTRACEPTION
     Dosage: UNK UNK, QD
     Route: 048
     Dates: start: 20060801, end: 20070802
  3. DICLOFENAC SODIUM [Concomitant]

REACTIONS (3)
  - SWELLING [None]
  - DEEP VEIN THROMBOSIS [None]
  - PAIN [None]
